FAERS Safety Report 7592041-0 (Version None)
Quarter: 2011Q2

REPORT INFORMATION
  Report Type: 
  Country: None (occurrence: None)
  Receive Date: 20110628
  Receipt Date: 20110616
  Transmission Date: 20111010
  Serious: Yes (Hospitalization)
  Sender: FDA-Public Use
  Company Number: 2011SP028213

PATIENT
  Age: 57 Year
  Sex: Male
  Weight: 65 kg

DRUGS (7)
  1. PEG-INTRON [Suspect]
     Indication: HEPATITIS C
     Dosage: 50 MCG; QW
     Dates: start: 20100126
  2. OMEPRAZOLE [Concomitant]
  3. VITAMIN B-12 [Concomitant]
  4. PROPRANOLOL [Concomitant]
  5. RIBAVIRIN [Suspect]
     Indication: HEPATITIS C
     Dosage: 1000 MG; QD
     Dates: start: 20100126
  6. DIHYDROERGOTAMINE MESYLATE [Concomitant]
  7. NEORECORMON [Concomitant]

REACTIONS (13)
  - ABDOMINAL PAIN UPPER [None]
  - HEPATOMEGALY [None]
  - ASTHENIA [None]
  - MUCOSAL DISCOLOURATION [None]
  - HYPOXIA [None]
  - DECUBITUS ULCER [None]
  - RESPIRATORY DISTRESS [None]
  - CHILLS [None]
  - INTERSTITIAL LUNG DISEASE [None]
  - SEPSIS [None]
  - PYREXIA [None]
  - NIGHT SWEATS [None]
  - PALLOR [None]
